FAERS Safety Report 7624924-7 (Version None)
Quarter: 2011Q3

REPORT INFORMATION
  Report Type: 
  Country: None (occurrence: None)
  Receive Date: 20110720
  Receipt Date: 20110712
  Transmission Date: 20111222
  Serious: Yes (Hospitalization, Other)
  Sender: FDA-Public Use
  Company Number: US-ASTRAZENECA-2010SE48061

PATIENT
  Age: 63 Year
  Sex: Male

DRUGS (7)
  1. NEXIUM [Suspect]
     Indication: GASTROOESOPHAGEAL REFLUX DISEASE
     Route: 048
  2. METFORMIN HCL [Concomitant]
  3. BENICAR [Concomitant]
  4. PRAVASTATIN [Concomitant]
  5. INSULIN [Concomitant]
  6. IBUPROFEN [Concomitant]
  7. VITAMIN TAB [Concomitant]

REACTIONS (4)
  - EYE DISORDER [None]
  - RETINOPEXY [None]
  - EYE LASER SURGERY [None]
  - GLAUCOMA SURGERY [None]
